FAERS Safety Report 19910403 (Version 1)
Quarter: 2021Q4

REPORT INFORMATION
  Report Type: Spontaneous
  Country: ES (occurrence: ES)
  Receive Date: 20211004
  Receipt Date: 20211004
  Transmission Date: 20220303
  Serious: Yes (Other)
  Sender: FDA-Public Use
  Company Number: ES-AEMPS-451738

PATIENT
  Age: 38 Year
  Sex: Female

DRUGS (4)
  1. MIRTAZAPINE [Suspect]
     Active Substance: MIRTAZAPINE
     Indication: Anxiety
     Dosage: 30 MILLIGRAM, ONCE A DAY (30MG/24H)
     Route: 048
     Dates: start: 20170601
  2. VENLAFAXINE [Suspect]
     Active Substance: VENLAFAXINE HYDROCHLORIDE
     Indication: Depression
     Dosage: 225 MILLIGRAM, ONCE A DAY (225MG/24H)
     Route: 048
     Dates: start: 20160602
  3. DIENOGEST\ESTRADIOL [Suspect]
     Active Substance: DIENOGEST\ESTRADIOL
     Indication: Contraception
     Dosage: 1 DOSAGE FORM, ONCE A DAY (2 MG/0.03 MG /24H)
     Route: 048
     Dates: start: 20181130
  4. ZOLPIDEM TARTRATE [Suspect]
     Active Substance: ZOLPIDEM TARTRATE
     Indication: Depression
     Dosage: 10 MILLIGRAM, ONCE A DAY (10 MG/24H)
     Route: 048
     Dates: start: 20140818, end: 20190130

REACTIONS (1)
  - Hallucination, visual [Unknown]

NARRATIVE: CASE EVENT DATE: 20171221
